FAERS Safety Report 8791531 (Version 1)
Quarter: 2012Q4

REPORT INFORMATION
  Report Type: Spontaneous
  Country: US (occurrence: None)
  Receive Date: 20120914
  Receipt Date: 20120914
  Transmission Date: 20130627
  Serious: Yes (Life-Threatening)
  Sender: FDA-Public Use
  Company Number: None

PATIENT
  Age: 47 Year
  Sex: Female
  Weight: 53 kg

DRUGS (1)
  1. ZOSYN [Suspect]
     Indication: SEPSIS
     Route: 042
     Dates: start: 20120902, end: 20120904

REACTIONS (2)
  - Epistaxis [None]
  - Toxic epidermal necrolysis [None]
